FAERS Safety Report 7473372-1 (Version None)
Quarter: 2011Q2

REPORT INFORMATION
  Report Type: 
  Country: None (occurrence: None)
  Receive Date: 20110511
  Receipt Date: 20110502
  Transmission Date: 20111010
  Serious: Yes (Death, Other)
  Sender: FDA-Public Use
  Company Number: US-CELGENEUS-163-21880-11011769

PATIENT
  Sex: Female

DRUGS (10)
  1. DOXORUBICIN HCL [Suspect]
     Indication: MULTIPLE MYELOMA
     Route: 065
  2. CYCLOPHOSPHAMIDE [Suspect]
     Indication: MULTIPLE MYELOMA
     Route: 065
  3. ETOPOSIDE [Suspect]
     Indication: MULTIPLE MYELOMA
     Route: 065
  4. THALOMID [Suspect]
     Indication: MULTIPLE MYELOMA
     Route: 048
  5. ALKERAN [Suspect]
     Indication: MULTIPLE MYELOMA
     Route: 065
  6. VINCRISTINE [Suspect]
     Indication: MULTIPLE MYELOMA
     Route: 065
  7. CISPLATIN [Suspect]
     Indication: MULTIPLE MYELOMA
     Route: 065
  8. DEXAMETHASONE [Suspect]
     Indication: MULTIPLE MYELOMA
     Route: 065
  9. REVLIMID [Suspect]
     Indication: MULTIPLE MYELOMA
     Route: 048
     Dates: start: 20070409, end: 20080129
  10. BORTEZOMIB [Suspect]
     Indication: MULTIPLE MYELOMA
     Route: 065

REACTIONS (2)
  - MULTIPLE MYELOMA [None]
  - MYELODYSPLASTIC SYNDROME [None]
